FAERS Safety Report 18431326 (Version 5)
Quarter: 2021Q3

REPORT INFORMATION
  Report Type: Spontaneous
  Country: US (occurrence: US)
  Receive Date: 20201027
  Receipt Date: 20210817
  Transmission Date: 20211014
  Serious: Yes (Other)
  Sender: FDA-Public Use
  Company Number: US-PFIZER INC-2020413720

PATIENT
  Age: 63 Year
  Sex: Female

DRUGS (7)
  1. IBRANCE [Suspect]
     Active Substance: PALBOCICLIB
     Indication: BREAST CANCER
     Dosage: 100 MG, CYCLIC
     Route: 048
     Dates: start: 20191015
  2. IBRANCE [Suspect]
     Active Substance: PALBOCICLIB
     Dosage: UNK
     Dates: start: 20200422
  3. IBRANCE [Suspect]
     Active Substance: PALBOCICLIB
     Indication: BREAST CANCER
     Dosage: UNK
     Dates: start: 20200404, end: 20210309
  4. IBRANCE [Suspect]
     Active Substance: PALBOCICLIB
     Dosage: UNK
     Dates: start: 20210715
  5. IBRANCE [Suspect]
     Active Substance: PALBOCICLIB
     Indication: BREAST CANCER
     Dosage: 100 MG, EVERYDAY FOR 21 DAYS, THEN OFF 7 DAYS
     Route: 048
     Dates: start: 20200406
  6. IBRANCE [Suspect]
     Active Substance: PALBOCICLIB
     Dosage: UNK
  7. IBRANCE [Suspect]
     Active Substance: PALBOCICLIB
     Dosage: 100 MG, 1X/DAY
     Route: 048
     Dates: start: 20200420

REACTIONS (14)
  - Neutropenia [Unknown]
  - Dry eye [Not Recovered/Not Resolved]
  - Bone pain [Unknown]
  - Abdominal pain [Unknown]
  - Decreased appetite [Not Recovered/Not Resolved]
  - Neoplasm progression [Unknown]
  - White blood cell count decreased [Unknown]
  - Ear pruritus [Unknown]
  - Musculoskeletal chest pain [Unknown]
  - Fatigue [Not Recovered/Not Resolved]
  - Alopecia [Not Recovered/Not Resolved]
  - Stomatitis [Not Recovered/Not Resolved]
  - Dry skin [Unknown]
  - Skin erosion [Unknown]

NARRATIVE: CASE EVENT DATE: 201911
